FAERS Safety Report 9929348 (Version 10)
Quarter: 2015Q2

REPORT INFORMATION
  Report Type: Report from Study
  Country: US (occurrence: US)
  Receive Date: 20140227
  Receipt Date: 20150608
  Transmission Date: 20150821
  Serious: Yes (Other)
  Sender: FDA-Public Use
  Company Number: US-SA-2014SA015064

PATIENT
  Age: 53 Year
  Sex: Female

DRUGS (5)
  1. AUBAGIO [Suspect]
     Active Substance: TERIFLUNOMIDE
     Indication: MULTIPLE SCLEROSIS
     Route: 048
     Dates: end: 20141201
  2. ASA [Concomitant]
     Active Substance: ASPIRIN
  3. AUBAGIO [Suspect]
     Active Substance: TERIFLUNOMIDE
     Indication: MULTIPLE SCLEROSIS
     Route: 048
  4. AUBAGIO [Suspect]
     Active Substance: TERIFLUNOMIDE
     Indication: MULTIPLE SCLEROSIS
     Route: 048
     Dates: start: 201310, end: 201410
  5. AUBAGIO [Suspect]
     Active Substance: TERIFLUNOMIDE
     Indication: MULTIPLE SCLEROSIS
     Route: 048
     Dates: start: 20150312

REACTIONS (24)
  - Upper respiratory tract infection [Recovered/Resolved]
  - Amnesia [Recovering/Resolving]
  - Nausea [Unknown]
  - Pain [Recovered/Resolved]
  - Headache [Unknown]
  - Liver function test abnormal [Unknown]
  - Vomiting [Unknown]
  - Contusion [Unknown]
  - Migraine [Recovered/Resolved]
  - Gait disturbance [Recovering/Resolving]
  - Nausea [Unknown]
  - Diarrhoea [Recovered/Resolved]
  - Fall [Unknown]
  - Abdominal discomfort [Unknown]
  - Fractured coccyx [Unknown]
  - Demyelination [Unknown]
  - Head injury [Unknown]
  - Pigmentation disorder [Unknown]
  - Amnesia [Unknown]
  - Gastrointestinal disorder [Unknown]
  - Back pain [Unknown]
  - Sensory disturbance [Unknown]
  - Arthralgia [Unknown]
  - Inappropriate schedule of drug administration [Unknown]

NARRATIVE: CASE EVENT DATE: 2014
